FAERS Safety Report 18342090 (Version 30)
Quarter: 2022Q1

REPORT INFORMATION
  Report Type: Report from Study
  Country: CN (occurrence: None)
  Receive Date: 20201005
  Receipt Date: 20220212
  Transmission Date: 20220423
  Serious: Yes (Death, Life-Threatening, Hospitalization)
  Sender: FDA-Public Use
  Company Number: CN-ROCHE-2687711

PATIENT
  Age: 66 Year
  Sex: Male
  Weight: 73 kg

DRUGS (68)
  1. PLACEBO [Suspect]
     Active Substance: UNSPECIFIED INGREDIENT
     Indication: Non-small cell lung cancer
     Dosage: ON DAY 1 OF EACH 21-DAY CYCLE (AS PER PROTOCOL)
     Route: 041
     Dates: start: 20200729
  2. CARBOPLATIN [Suspect]
     Active Substance: CARBOPLATIN
     Indication: Non-small cell lung cancer
     Dosage: IV INFUSION TO ACHIEVE AN INITIAL TARGET AUC OF 6 MG/ML/MIN (AS PER PROTOCOL)?MOST RECENT DOSE 500
     Route: 042
     Dates: start: 20200729
  3. CARBOPLATIN [Suspect]
     Active Substance: CARBOPLATIN
     Indication: Non-small cell lung cancer
  4. PACLITAXEL [Suspect]
     Active Substance: PACLITAXEL
     Indication: Non-small cell lung cancer
     Dosage: IV INFUSION AT A DOSE OF 175 MG/M2 (AS PER PROTOCOL) ?MOST RECENT DOSE 250 MG OF PACLITAXEL PRIOR TO
     Route: 042
     Dates: start: 20200729
  5. PACLITAXEL [Suspect]
     Active Substance: PACLITAXEL
     Indication: Non-small cell lung cancer
  6. BEVACIZUMAB [Suspect]
     Active Substance: BEVACIZUMAB
     Indication: Non-small cell lung cancer
     Dosage: IV INFUSION AT A DOSE OF 15 MG/KG ON DAY 1 OF EACH 21-DAY CYCLE (AS PER PROTOCOL)?MOST RECENT DOSE 1
     Route: 042
     Dates: start: 20200729
  7. DEXAMETHASONE [Concomitant]
     Active Substance: DEXAMETHASONE
     Dosage: SUBSEQUENT DOSE ON 29-JUL-2020, 18-AUG-2020, 19-AUG-2020, 16-SEP-2020, 17-SEP-2020.
     Route: 048
     Dates: start: 20200728, end: 20200729
  8. DEXAMETHASONE [Concomitant]
     Active Substance: DEXAMETHASONE
     Route: 048
     Dates: start: 20200916, end: 20200916
  9. DEXAMETHASONE [Concomitant]
     Active Substance: DEXAMETHASONE
     Route: 048
     Dates: start: 20200729, end: 20200729
  10. DEXAMETHASONE [Concomitant]
     Active Substance: DEXAMETHASONE
     Route: 048
     Dates: start: 20200818, end: 20200818
  11. DEXAMETHASONE [Concomitant]
     Active Substance: DEXAMETHASONE
     Route: 048
     Dates: start: 20200916, end: 20200916
  12. DEXAMETHASONE [Concomitant]
     Active Substance: DEXAMETHASONE
     Route: 048
     Dates: start: 20200917, end: 20200917
  13. DEXAMETHASONE [Concomitant]
     Active Substance: DEXAMETHASONE
     Route: 048
     Dates: start: 20201102, end: 20201103
  14. DEXAMETHASONE [Concomitant]
     Active Substance: DEXAMETHASONE
     Route: 048
     Dates: start: 20200819, end: 20200819
  15. DIPHENHYDRAMINE [Concomitant]
     Active Substance: DIPHENHYDRAMINE
     Dates: start: 20200729, end: 20200729
  16. DIPHENHYDRAMINE [Concomitant]
     Active Substance: DIPHENHYDRAMINE
     Dates: start: 20200819, end: 20200819
  17. DIPHENHYDRAMINE [Concomitant]
     Active Substance: DIPHENHYDRAMINE
     Dates: start: 20200917, end: 20200917
  18. CIMETIDINE [Concomitant]
     Active Substance: CIMETIDINE
     Dates: start: 20200729, end: 20200729
  19. CIMETIDINE [Concomitant]
     Active Substance: CIMETIDINE
     Dates: start: 20200819, end: 20200819
  20. CIMETIDINE [Concomitant]
     Active Substance: CIMETIDINE
     Dates: start: 20200917, end: 20200917
  21. PALONOSETRON [Concomitant]
     Active Substance: PALONOSETRON
     Indication: Prophylaxis
     Dates: start: 20200729, end: 20200729
  22. PALONOSETRON [Concomitant]
     Active Substance: PALONOSETRON
     Dates: start: 20200819, end: 20200819
  23. PALONOSETRON [Concomitant]
     Active Substance: PALONOSETRON
     Dates: start: 20200917, end: 20200917
  24. PANTOPRAZOLE [Concomitant]
     Active Substance: PANTOPRAZOLE
     Dates: start: 20200729, end: 20200729
  25. PANTOPRAZOLE [Concomitant]
     Active Substance: PANTOPRAZOLE
     Dates: start: 20201103, end: 20201103
  26. ZOLEDRONIC ACID [Concomitant]
     Active Substance: ZOLEDRONIC ACID
     Dosage: THIS ADMINISTRATION WAS FOR A HISTORY OF BONE METASTASES AND WAS NOT ASSOCIATED WITH AE
     Dates: start: 20200729, end: 20200729
  27. ZOLEDRONIC ACID [Concomitant]
     Active Substance: ZOLEDRONIC ACID
     Dosage: TREATMENT OF BONE METASTASIS
     Dates: start: 20200819, end: 20200819
  28. ZOLEDRONIC ACID [Concomitant]
     Active Substance: ZOLEDRONIC ACID
     Dosage: TREATMENT OF BONE METASTASIS
     Dates: start: 20200917, end: 20200917
  29. IBUPROFEN [Concomitant]
     Active Substance: IBUPROFEN
     Indication: Pyrexia
     Dates: start: 20200730, end: 20200730
  30. GRANULOCYTE COLONY-STIMULATING FACTOR NOS [Concomitant]
     Active Substance: GRANULOCYTE COLONY-STIMULATING FACTOR NOS
     Indication: White blood cell count decreased
     Dates: start: 20200804, end: 20200804
  31. GRANULOCYTE COLONY-STIMULATING FACTOR NOS [Concomitant]
     Active Substance: GRANULOCYTE COLONY-STIMULATING FACTOR NOS
     Indication: White blood cell count increased
     Dates: start: 20200828, end: 20200828
  32. GRANULOCYTE COLONY-STIMULATING FACTOR NOS [Concomitant]
     Active Substance: GRANULOCYTE COLONY-STIMULATING FACTOR NOS
     Indication: Neutrophil count increased
     Dates: start: 20200830, end: 20200830
  33. GRANULOCYTE COLONY-STIMULATING FACTOR NOS [Concomitant]
     Active Substance: GRANULOCYTE COLONY-STIMULATING FACTOR NOS
     Indication: Platelet count increased
     Dates: start: 20200901, end: 20200901
  34. GRANULOCYTE COLONY-STIMULATING FACTOR NOS [Concomitant]
     Active Substance: GRANULOCYTE COLONY-STIMULATING FACTOR NOS
     Dates: start: 20200904, end: 20200904
  35. GRANULOCYTE COLONY-STIMULATING FACTOR NOS [Concomitant]
     Active Substance: GRANULOCYTE COLONY-STIMULATING FACTOR NOS
     Dates: start: 20200910, end: 20200910
  36. GRANULOCYTE COLONY-STIMULATING FACTOR NOS [Concomitant]
     Active Substance: GRANULOCYTE COLONY-STIMULATING FACTOR NOS
     Dates: start: 20200919, end: 20200919
  37. GRANULOCYTE COLONY-STIMULATING FACTOR NOS [Concomitant]
     Active Substance: GRANULOCYTE COLONY-STIMULATING FACTOR NOS
     Dates: start: 20200923, end: 20200923
  38. GRANULOCYTE COLONY-STIMULATING FACTOR NOS [Concomitant]
     Active Substance: GRANULOCYTE COLONY-STIMULATING FACTOR NOS
     Dates: start: 20200923, end: 20200923
  39. GRANULOCYTE COLONY-STIMULATING FACTOR NOS [Concomitant]
     Active Substance: GRANULOCYTE COLONY-STIMULATING FACTOR NOS
     Dates: start: 20200925, end: 20200925
  40. GRANULOCYTE COLONY-STIMULATING FACTOR NOS [Concomitant]
     Active Substance: GRANULOCYTE COLONY-STIMULATING FACTOR NOS
     Dates: start: 20200927, end: 20200927
  41. GRANULOCYTE COLONY-STIMULATING FACTOR NOS [Concomitant]
     Active Substance: GRANULOCYTE COLONY-STIMULATING FACTOR NOS
     Dates: start: 20200929, end: 20200929
  42. GRANULOCYTE COLONY-STIMULATING FACTOR NOS [Concomitant]
     Active Substance: GRANULOCYTE COLONY-STIMULATING FACTOR NOS
     Dates: start: 20201003, end: 20201003
  43. GRANULOCYTE COLONY-STIMULATING FACTOR NOS [Concomitant]
     Active Substance: GRANULOCYTE COLONY-STIMULATING FACTOR NOS
     Dates: start: 20201014, end: 20201014
  44. GRANULOCYTE COLONY-STIMULATING FACTOR NOS [Concomitant]
     Active Substance: GRANULOCYTE COLONY-STIMULATING FACTOR NOS
     Dates: start: 20201018, end: 20201019
  45. GRANULOCYTE COLONY-STIMULATING FACTOR NOS [Concomitant]
     Active Substance: GRANULOCYTE COLONY-STIMULATING FACTOR NOS
     Dates: start: 20200731, end: 20200731
  46. GRANULOCYTE COLONY-STIMULATING FACTOR NOS [Concomitant]
     Active Substance: GRANULOCYTE COLONY-STIMULATING FACTOR NOS
     Dates: start: 20200806, end: 20200808
  47. GRANULOCYTE COLONY-STIMULATING FACTOR NOS [Concomitant]
     Active Substance: GRANULOCYTE COLONY-STIMULATING FACTOR NOS
     Dates: start: 20200810, end: 20200810
  48. GRANULOCYTE COLONY-STIMULATING FACTOR NOS [Concomitant]
     Active Substance: GRANULOCYTE COLONY-STIMULATING FACTOR NOS
     Dates: start: 20200812, end: 20200812
  49. GRANULOCYTE COLONY-STIMULATING FACTOR NOS [Concomitant]
     Active Substance: GRANULOCYTE COLONY-STIMULATING FACTOR NOS
     Dates: start: 20200822, end: 20200822
  50. GRANULOCYTE COLONY-STIMULATING FACTOR NOS [Concomitant]
     Active Substance: GRANULOCYTE COLONY-STIMULATING FACTOR NOS
     Dates: start: 20200826, end: 20200826
  51. CEFIXIME [Concomitant]
     Active Substance: CEFIXIME
     Dates: start: 20200806, end: 20200815
  52. OPRELVEKIN [Concomitant]
     Active Substance: OPRELVEKIN
     Indication: Platelet count decreased
     Dates: start: 20200802, end: 20200802
  53. OPRELVEKIN [Concomitant]
     Active Substance: OPRELVEKIN
     Indication: Platelet count increased
     Dates: start: 20200806, end: 20200807
  54. OPRELVEKIN [Concomitant]
     Active Substance: OPRELVEKIN
     Dates: start: 20200812, end: 20200812
  55. OPRELVEKIN [Concomitant]
     Active Substance: OPRELVEKIN
     Dates: start: 20200828, end: 20200828
  56. OPRELVEKIN [Concomitant]
     Active Substance: OPRELVEKIN
     Dates: start: 20200904, end: 20200915
  57. OPRELVEKIN [Concomitant]
     Active Substance: OPRELVEKIN
     Dates: start: 20200919, end: 20200919
  58. OPRELVEKIN [Concomitant]
     Active Substance: OPRELVEKIN
     Dates: start: 20200921, end: 20200921
  59. OPRELVEKIN [Concomitant]
     Active Substance: OPRELVEKIN
     Dates: start: 20200923, end: 20200923
  60. OPRELVEKIN [Concomitant]
     Active Substance: OPRELVEKIN
     Dates: start: 20200925, end: 20200925
  61. OPRELVEKIN [Concomitant]
     Active Substance: OPRELVEKIN
     Dates: start: 20200927, end: 20200927
  62. OPRELVEKIN [Concomitant]
     Active Substance: OPRELVEKIN
     Dates: start: 20200929, end: 20200929
  63. OPRELVEKIN [Concomitant]
     Active Substance: OPRELVEKIN
     Dates: start: 20201002, end: 20201013
  64. OPRELVEKIN [Concomitant]
     Active Substance: OPRELVEKIN
     Dates: start: 20200904, end: 20200915
  65. PANTOPRAZOLE SODIUM [Concomitant]
     Active Substance: PANTOPRAZOLE SODIUM
     Dates: start: 20200819, end: 20200819
  66. PANTOPRAZOLE SODIUM [Concomitant]
     Active Substance: PANTOPRAZOLE SODIUM
     Dates: start: 20200917, end: 20200917
  67. FOLIC ACID [Concomitant]
     Active Substance: FOLIC ACID
     Dates: start: 20201019
  68. ACETYLCYSTEINE [Concomitant]
     Active Substance: ACETYLCYSTEINE
     Indication: Cough
     Dates: start: 20201101

REACTIONS (4)
  - Pneumonia [Fatal]
  - Septic shock [Recovered/Resolved]
  - Renal impairment [Recovered/Resolved]
  - Anaemia [Recovered/Resolved]

NARRATIVE: CASE EVENT DATE: 20200824
